FAERS Safety Report 4408592-3 (Version None)
Quarter: 2004Q3

REPORT INFORMATION
  Report Type: 
  Country: None (occurrence: None)
  Receive Date: 20040723
  Receipt Date: 20040712
  Transmission Date: 20050211
  Serious: Yes (Hospitalization)
  Sender: FDA-Public Use
  Company Number: BE-JNJFOC-20040702529

PATIENT
  Age: 63 Year
  Sex: Male

DRUGS (3)
  1. INFLIXIMAB (INFLIXIMAB, RECOMBINANT) LYOPHILIZED POWDER [Suspect]
     Dosage: 5 MG/KG, INTRAVENOUS
     Route: 042
     Dates: start: 19991129
  2. LOSARTAN AND HYDROCHLORIDE (HYZAAR) [Concomitant]
  3. ESOMEPRAZOLE [Concomitant]

REACTIONS (4)
  - ASTHENIA [None]
  - ASTHMA [None]
  - HYPERHIDROSIS [None]
  - VIRAL INFECTION [None]
